FAERS Safety Report 17912177 (Version 1)
Quarter: 2020Q2

REPORT INFORMATION
  Report Type: Spontaneous
  Country: US (occurrence: US)
  Receive Date: 20200618
  Receipt Date: 20200618
  Transmission Date: 20200714
  Serious: Yes (Other)
  Sender: FDA-Public Use
  Company Number: None

PATIENT
  Age: 59 Year
  Sex: Male
  Weight: 94.1 kg

DRUGS (18)
  1. ATORVASTATIN [Concomitant]
     Active Substance: ATORVASTATIN
  2. FENTANYL. [Concomitant]
     Active Substance: FENTANYL
  3. METOPROLOL TARTRATE. [Concomitant]
     Active Substance: METOPROLOL TARTRATE
  4. REMDESIVIR. [Suspect]
     Active Substance: REMDESIVIR
     Indication: COVID-19
     Route: 042
     Dates: start: 20200611, end: 20200617
  5. ACETAMINOPHEN. [Concomitant]
     Active Substance: ACETAMINOPHEN
  6. ALBUTEROL. [Concomitant]
     Active Substance: ALBUTEROL
  7. HEPARIN [Concomitant]
     Active Substance: HEPARIN SODIUM
  8. HUMULIN N [Concomitant]
     Active Substance: INSULIN HUMAN
  9. PROPOFOL. [Concomitant]
     Active Substance: PROPOFOL
  10. AMLODIPINE [Concomitant]
     Active Substance: AMLODIPINE BESYLATE
  11. NOREPINEPHRINE. [Concomitant]
     Active Substance: NOREPINEPHRINE
  12. VANCOMYCIN [Concomitant]
     Active Substance: VANCOMYCIN
  13. ETOMIDATE. [Concomitant]
     Active Substance: ETOMIDATE
  14. CEFEPIME [Concomitant]
     Active Substance: CEFEPIME HYDROCHLORIDE
  15. HUMULIN R [Concomitant]
     Active Substance: INSULIN HUMAN
  16. MIDAZOLAM. [Concomitant]
     Active Substance: MIDAZOLAM
  17. ONDANSETRON [Concomitant]
     Active Substance: ONDANSETRON
  18. DEXMEDETOMIDINE. [Concomitant]
     Active Substance: DEXMEDETOMIDINE

REACTIONS (1)
  - Acute kidney injury [None]

NARRATIVE: CASE EVENT DATE: 20200618
